FAERS Safety Report 25281247 (Version 3)
Quarter: 2025Q3

REPORT INFORMATION
  Report Type: Report from Study
  Country: US (occurrence: US)
  Receive Date: 20250508
  Receipt Date: 20250730
  Transmission Date: 20251021
  Serious: No
  Sender: SUNOVION
  Company Number: US-SMPA-2025SPA004559AA

PATIENT

DRUGS (3)
  1. ORGOVYX [Suspect]
     Active Substance: RELUGOLIX
     Indication: Prostate cancer
     Route: 048
     Dates: start: 20250313, end: 20250313
  2. ORGOVYX [Suspect]
     Active Substance: RELUGOLIX
     Dosage: 120 MG, QD
     Route: 048
     Dates: start: 20250314
  3. ORGOVYX [Suspect]
     Active Substance: RELUGOLIX
     Dates: start: 20250313

REACTIONS (3)
  - Feeling of body temperature change [Unknown]
  - Night sweats [Unknown]
  - Hot flush [Recovering/Resolving]
